FAERS Safety Report 7715480-3 (Version None)
Quarter: 2011Q3

REPORT INFORMATION
  Report Type: 
  Country: None (occurrence: None)
  Receive Date: 20110829
  Receipt Date: 20110822
  Transmission Date: 20111222
  Serious: Yes (Hospitalization)
  Sender: FDA-Public Use
  Company Number: DE-SANOFI-AVENTIS-2011SA053489

PATIENT
  Age: 60 Year
  Sex: Female
  Weight: 90 kg

DRUGS (7)
  1. DOCETAXEL [Suspect]
     Route: 041
  2. GRANISETRON [Suspect]
     Indication: PROPHYLAXIS
     Route: 042
     Dates: start: 20110516
  3. CYCLOPHOSPHAMIDE [Suspect]
     Route: 041
  4. MESNA [Suspect]
     Indication: PROPHYLAXIS
     Route: 042
     Dates: start: 20110516
  5. DOCETAXEL [Suspect]
     Indication: BREAST CANCER
     Route: 041
     Dates: start: 20110516, end: 20110516
  6. CYCLOPHOSPHAMIDE [Suspect]
     Indication: BREAST CANCER
     Route: 041
     Dates: start: 20110516, end: 20110516
  7. DEXAMETHASONE [Suspect]
     Indication: PROPHYLAXIS
     Route: 042
     Dates: start: 20110516

REACTIONS (1)
  - HOSPITALISATION [None]
